FAERS Safety Report 9675941 (Version 1)
Quarter: 2013Q4

REPORT INFORMATION
  Report Type: Spontaneous
  Country: US (occurrence: TR)
  Receive Date: 20131107
  Receipt Date: 20131107
  Transmission Date: 20140711
  Serious: Yes (Other)
  Sender: FDA-Public Use
  Company Number: TR-PFIZER INC-2013313685

PATIENT
  Age: 71 Year
  Sex: Female

DRUGS (4)
  1. PACLITAXEL [Suspect]
     Indication: INVASIVE DUCTAL BREAST CARCINOMA
     Dosage: 175 MG/M2, CYCLIC
  2. DEXAMETHASONE [Concomitant]
     Indication: PREMEDICATION
  3. DIPHENHYDRAMINE [Concomitant]
     Indication: PREMEDICATION
  4. FAMOTIDINE [Concomitant]
     Indication: PREMEDICATION

REACTIONS (1)
  - Alveolitis allergic [Recovered/Resolved]
